FAERS Safety Report 21580535 (Version 1)
Quarter: 2022Q4

REPORT INFORMATION
  Report Type: Spontaneous
  Country: NL (occurrence: NL)
  Receive Date: 20221110
  Receipt Date: 20221110
  Transmission Date: 20230113
  Serious: Yes (Other)
  Sender: FDA-Public Use
  Company Number: NL-LRB-00840607

PATIENT
  Sex: Male
  Weight: 51.5 kg

DRUGS (2)
  1. FLUOXETINE [Suspect]
     Active Substance: FLUOXETINE HYDROCHLORIDE
     Indication: Depression
     Dosage: 20 MILLIGRAM, ONCE A DAY (1XPERDAG 1 STUKS)
     Route: 065
     Dates: start: 20220505
  2. METHYLPHENIDATE HYDROCHLORIDE [Suspect]
     Active Substance: METHYLPHENIDATE HYDROCHLORIDE
     Indication: Attention deficit hyperactivity disorder
     Dosage: 5 MILLIGRAM, 3 TIMES A DAY (VOORGESCHREVEN 3X 5 MG ALS START MEDICATIE)
     Route: 065
     Dates: start: 20221018, end: 20221019

REACTIONS (1)
  - Dystonia [Recovered/Resolved]
